FAERS Safety Report 9827290 (Version 1)
Quarter: 2014Q1

REPORT INFORMATION
  Report Type: Spontaneous
  Country: US (occurrence: US)
  Receive Date: 20140117
  Receipt Date: 20140117
  Transmission Date: 20141002
  Serious: Yes (Other)
  Sender: FDA-Public Use
  Company Number: US-BRISTOL-MYERS SQUIBB COMPANY-19921311

PATIENT
  Sex: Male

DRUGS (1)
  1. YERVOY [Suspect]
     Indication: MALIGNANT MELANOMA

REACTIONS (1)
  - Malignant neoplasm progression [Unknown]
